FAERS Safety Report 21163385 (Version 1)
Quarter: 2022Q3

REPORT INFORMATION
  Report Type: Spontaneous
  Country: None (occurrence: US)
  Receive Date: 20220802
  Receipt Date: 20220802
  Transmission Date: 20221026
  Serious: Yes (Other)
  Sender: FDA-Public Use
  Company Number: US-GREER Laboratories, Inc.-2131462

PATIENT
  Age: 21 Year
  Sex: Female

DRUGS (2)
  1. MOLDS, RUSTS AND SMUTS, ALTERNARIA TENUIS (ALTERNATA) [Suspect]
     Active Substance: ALTERNARIA ALTERNATA
     Indication: Allergy test
     Route: 050
     Dates: start: 20220628, end: 20220628
  2. FUSARIUM MIX [Suspect]
     Active Substance: GIBBERELLA FUJIKUROI\HAEMATONECTRIA HAEMATOCOCCA
     Route: 050
     Dates: start: 20220628, end: 20220628

REACTIONS (1)
  - Anaphylactic reaction [Unknown]

NARRATIVE: CASE EVENT DATE: 20220628
